FAERS Safety Report 18909053 (Version 1)
Quarter: 2021Q1

REPORT INFORMATION
  Report Type: Spontaneous
  Country: US (occurrence: US)
  Receive Date: 20210217
  Receipt Date: 20210217
  Transmission Date: 20210420
  Serious: Yes (Death)
  Sender: FDA-Public Use
  Company Number: None

PATIENT
  Age: 71 Year
  Sex: Male

DRUGS (24)
  1. TACROLIMUS. [Suspect]
     Active Substance: TACROLIMUS
     Indication: LUNG TRANSPLANT
     Dosage: OTHER FREQUENCY:Q12H;?
     Route: 048
     Dates: start: 20131030
  2. ELIQUIS [Concomitant]
     Active Substance: APIXABAN
  3. ANASTROZ [Concomitant]
  4. CRESTOR [Concomitant]
     Active Substance: ROSUVASTATIN CALCIUM
  5. LYRICA [Concomitant]
     Active Substance: PREGABALIN
  6. SLOW MAG [Concomitant]
     Active Substance: MAGNESIUM CHLORIDE
  7. TACROLIMUS. [Suspect]
     Active Substance: TACROLIMUS
     Indication: RENAL TRANSPLANT
     Dosage: OTHER FREQUENCY:Q12H;?
     Route: 048
     Dates: start: 20131030
  8. BACTRIM [Concomitant]
     Active Substance: SULFAMETHOXAZOLE\TRIMETHOPRIM
  9. HUMALOG [Concomitant]
     Active Substance: INSULIN LISPRO
  10. NEXIUM [Concomitant]
     Active Substance: ESOMEPRAZOLE MAGNESIUM
  11. SYNTHROID [Concomitant]
     Active Substance: LEVOTHYROXINE SODIUM
  12. VITAMIN B12 [Concomitant]
     Active Substance: CYANOCOBALAMIN
  13. LASIX [Concomitant]
     Active Substance: FUROSEMIDE
  14. NORVASC [Concomitant]
     Active Substance: AMLODIPINE BESYLATE
  15. NOVOLOG [Concomitant]
     Active Substance: INSULIN ASPART
  16. PREDNISONE. [Concomitant]
     Active Substance: PREDNISONE
  17. CAPECITABINE. [Concomitant]
     Active Substance: CAPECITABINE
  18. EFFEXOR [Concomitant]
     Active Substance: VENLAFAXINE HYDROCHLORIDE
  19. XANAX [Concomitant]
     Active Substance: ALPRAZOLAM
  20. AMILORIDE [Concomitant]
     Active Substance: AMILORIDE
  21. LANTUS [Concomitant]
     Active Substance: INSULIN GLARGINE
  22. LOSARTAN. [Concomitant]
     Active Substance: LOSARTAN
  23. PRAVAST [Concomitant]
  24. PROGRAF [Concomitant]
     Active Substance: TACROLIMUS

REACTIONS (1)
  - Death [None]

NARRATIVE: CASE EVENT DATE: 20210108
